FAERS Safety Report 18553445 (Version 1)
Quarter: 2020Q4

REPORT INFORMATION
  Report Type: Spontaneous
  Country: US (occurrence: US)
  Receive Date: 20201127
  Receipt Date: 20201127
  Transmission Date: 20210114
  Serious: Yes (Hospitalization, Other)
  Sender: FDA-Public Use
  Company Number: US-SCIEGEN-2020SCILIT00409

PATIENT
  Age: 70 Year
  Sex: Male

DRUGS (6)
  1. RITUXIMAB. [Interacting]
     Active Substance: RITUXIMAB
     Indication: PULMONARY ALVEOLAR HAEMORRHAGE
  2. PREDNISONE. [Suspect]
     Active Substance: PREDNISONE
  3. PREDNISONE. [Suspect]
     Active Substance: PREDNISONE
  4. RITUXIMAB. [Interacting]
     Active Substance: RITUXIMAB
     Indication: LUPUS VASCULITIS
     Route: 065
  5. HYDRALAZINE HYDROCHLORIDE. [Suspect]
     Active Substance: HYDRALAZINE HYDROCHLORIDE
     Indication: HYPERTENSION
     Route: 065
  6. METHYLPREDNISOLONE. [Interacting]
     Active Substance: METHYLPREDNISOLONE
     Indication: LUPUS VASCULITIS
     Route: 042

REACTIONS (2)
  - Pulmonary alveolar haemorrhage [Recovered/Resolved]
  - Lupus vasculitis [Recovered/Resolved]
